FAERS Safety Report 21703468 (Version 2)
Quarter: 2022Q4

REPORT INFORMATION
  Report Type: Spontaneous
  Country: AT (occurrence: AT)
  Receive Date: 20221209
  Receipt Date: 20221227
  Transmission Date: 20230112
  Serious: No
  Sender: FDA-Public Use
  Company Number: AT-EBERTH-2022000175

PATIENT
  Age: 18 Year
  Sex: Male

DRUGS (15)
  1. POSACONAZOLE [Interacting]
     Active Substance: POSACONAZOLE
     Indication: Antifungal prophylaxis
     Dosage: UNK
     Route: 048
     Dates: start: 2018
  2. VINCRISTINE [Interacting]
     Active Substance: VINCRISTINE
     Indication: Acute lymphocytic leukaemia
     Dosage: DAY 8, 15, 22
     Route: 042
     Dates: start: 2018, end: 2018
  3. MEROPENEM [Suspect]
     Active Substance: MEROPENEM
     Indication: Blood culture positive
     Dosage: UNK
     Dates: start: 2018
  4. MEROPENEM [Suspect]
     Active Substance: MEROPENEM
     Indication: Enterococcus test positive
  5. MEROPENEM [Suspect]
     Active Substance: MEROPENEM
     Indication: Staphylococcus test positive
  6. VANCOMYCIN [Concomitant]
     Active Substance: VANCOMYCIN
     Indication: Staphylococcus test positive
     Dosage: UNK
     Dates: start: 2018
  7. VANCOMYCIN [Concomitant]
     Active Substance: VANCOMYCIN
     Indication: Blood culture positive
  8. VANCOMYCIN [Concomitant]
     Active Substance: VANCOMYCIN
     Indication: Pyrexia
  9. VANCOMYCIN [Concomitant]
     Active Substance: VANCOMYCIN
     Indication: C-reactive protein abnormal
  10. GRANULOCYTE COLONY-STIMULATING FACTOR NOS [Concomitant]
     Active Substance: GRANULOCYTE COLONY-STIMULATING FACTOR NOS
     Indication: Neutropenia
     Dosage: UNTIL LEUKOCYTE REGENERATION
     Route: 058
     Dates: start: 2018
  11. PEGASPARGASE [Concomitant]
     Active Substance: PEGASPARGASE
     Indication: Acute lymphocytic leukaemia
     Dosage: DOSE UNIT: IE/M2; ON DAY 12
     Route: 042
     Dates: start: 2018
  12. PEGASPARGASE [Concomitant]
     Active Substance: PEGASPARGASE
     Dosage: DAY 42, DELAYED/REDUCED DUE TO ILEUS, LIPASE INCREASE, LFP INCREASED
     Route: 042
     Dates: start: 2018
  13. DEXAMETHASONE [Concomitant]
     Active Substance: DEXAMETHASONE
     Indication: Acute lymphocytic leukaemia
     Dosage: DAYS 6-7, 15-16, 22-23, 29-30
     Route: 048
     Dates: start: 2018
  14. METHOTREXATE [Concomitant]
     Active Substance: METHOTREXATE
     Indication: Acute lymphocytic leukaemia
     Dosage: DAY 2, 21, 43
     Route: 037
     Dates: start: 2018
  15. DAUNORUBICIN [Concomitant]
     Active Substance: DAUNORUBICIN
     Indication: Acute lymphocytic leukaemia
     Dosage: DAY8, 15, 22, 37
     Route: 042
     Dates: start: 2018

REACTIONS (1)
  - Liver function test increased [Recovered/Resolved]

NARRATIVE: CASE EVENT DATE: 20180101
